FAERS Safety Report 24145030 (Version 4)
Quarter: 2024Q4

REPORT INFORMATION
  Report Type: Report from Study
  Country: JP (occurrence: JP)
  Receive Date: 20240729
  Receipt Date: 20241223
  Transmission Date: 20250115
  Serious: Yes (Hospitalization, Other)
  Sender: TAKEDA
  Company Number: JP-TAKEDA-2022TJP057959

PATIENT
  Age: 14 Year
  Sex: Male
  Weight: 41 kg

DRUGS (13)
  1. TEDUGLUTIDE [Suspect]
     Active Substance: TEDUGLUTIDE
     Indication: Short-bowel syndrome
     Dosage: 0.05 MILLIGRAM/KILOGRAM
     Dates: start: 20220414, end: 20221109
  2. TEDUGLUTIDE [Suspect]
     Active Substance: TEDUGLUTIDE
     Dosage: 0.025 MILLIGRAM/KILOGRAM
     Dates: start: 20221110, end: 20230621
  3. TEDUGLUTIDE [Suspect]
     Active Substance: TEDUGLUTIDE
     Dosage: 0.025 MILLIGRAM/KILOGRAM, QOD
     Dates: start: 20230622, end: 20230910
  4. TEDUGLUTIDE [Suspect]
     Active Substance: TEDUGLUTIDE
  5. UNSPECIFIED INGREDIENT [Concomitant]
     Active Substance: UNSPECIFIED INGREDIENT
     Indication: Short-bowel syndrome
     Dosage: 1 GRAM, TID
  6. CALCIUM POLYCARBOPHIL [Concomitant]
     Active Substance: CALCIUM POLYCARBOPHIL
     Indication: Short-bowel syndrome
     Dosage: UNK
  7. BIO-THREE [Concomitant]
     Active Substance: HERBALS
     Indication: Diarrhoea
     Dosage: 1 DOSAGE FORM, BID
  8. BIO-THREE [Concomitant]
     Active Substance: HERBALS
     Indication: Short-bowel syndrome
  9. ENEVO [Concomitant]
     Indication: Short-bowel syndrome
     Dosage: UNK
  10. CALCIUM POLYCARBOPHIL [Concomitant]
     Active Substance: CALCIUM POLYCARBOPHIL
     Dosage: UNK
  11. ZINC [Concomitant]
     Active Substance: ZINC
     Dosage: UNK
  12. CALCIUM POLYCARBOPHIL [Concomitant]
     Active Substance: CALCIUM POLYCARBOPHIL
     Indication: Short-bowel syndrome
     Dosage: 2 DOSAGE FORM, TID
  13. CALCIUM POLYCARBOPHIL [Concomitant]
     Active Substance: CALCIUM POLYCARBOPHIL
     Indication: Diarrhoea

REACTIONS (6)
  - Sepsis [Recovered/Resolved]
  - Cholecystitis [Recovered/Resolved]
  - Amino acid level increased [Not Recovered/Not Resolved]
  - Abdominal pain [Not Recovered/Not Resolved]
  - Inappropriate schedule of product administration [Unknown]
  - Underdose [Unknown]

NARRATIVE: CASE EVENT DATE: 20220414
